FAERS Safety Report 5192228-0 (Version None)
Quarter: 2006Q4

REPORT INFORMATION
  Report Type: 
  Country: None (occurrence: None)
  Receive Date: 20061227
  Receipt Date: 20060601
  Transmission Date: 20070319
  Serious: Yes (Death, Hospitalization)
  Sender: FDA-Public Use
  Company Number: DE-ROCHE-450266

PATIENT
  Age: 59 Year
  Sex: Female
  Weight: 70 kg

DRUGS (1)
  1. XELODA [Suspect]
     Dosage: DOSE REPORTED AS 4300 DAILY (NO UNITS)
     Route: 048
     Dates: start: 20060509, end: 20060519

REACTIONS (10)
  - ARTERIOSCLEROSIS [None]
  - ARTERIOSCLEROSIS CORONARY ARTERY [None]
  - BRONCHOPNEUMONIA [None]
  - CARDIOPULMONARY FAILURE [None]
  - COLITIS ULCERATIVE [None]
  - GENERAL PHYSICAL HEALTH DETERIORATION [None]
  - MOUTH ULCERATION [None]
  - NOCARDIOSIS [None]
  - PANCYTOPENIA [None]
  - UTERINE POLYP [None]
